FAERS Safety Report 11588408 (Version 1)
Quarter: 2015Q4

REPORT INFORMATION
  Report Type: Spontaneous
  Country: US (occurrence: US)
  Receive Date: 20151002
  Receipt Date: 20151002
  Transmission Date: 20160304
  Serious: No
  Sender: FDA-Public Use
  Company Number: US-ASTRAZENECA-2015SE91427

PATIENT
  Sex: Female
  Weight: 91.2 kg

DRUGS (11)
  1. LIPITOR [Concomitant]
     Active Substance: ATORVASTATIN CALCIUM
     Route: 048
  2. TRICOR [Concomitant]
     Active Substance: FENOFIBRATE
     Route: 048
  3. BYDUREON [Suspect]
     Active Substance: EXENATIDE
     Dosage: SDT
     Route: 058
  4. LISINOPRIL. [Suspect]
     Active Substance: LISINOPRIL
     Route: 048
  5. SYNTHROID [Concomitant]
     Active Substance: LEVOTHYROXINE SODIUM
     Route: 048
  6. FLUTICASONE [Concomitant]
     Active Substance: FLUTICASONE\FLUTICASONE PROPIONATE
     Route: 045
  7. METFORMIN [Concomitant]
     Active Substance: METFORMIN HYDROCHLORIDE
     Route: 048
  8. BYDUREON [Suspect]
     Active Substance: EXENATIDE
     Dosage: PEN
     Route: 058
  9. ZETIA [Concomitant]
     Active Substance: EZETIMIBE
     Route: 048
  10. LEXAPRO [Concomitant]
     Active Substance: ESCITALOPRAM OXALATE
     Route: 048
  11. ISOSORBIDE. [Concomitant]
     Active Substance: ISOSORBIDE
     Route: 048

REACTIONS (5)
  - Weight increased [Unknown]
  - Underdose [Unknown]
  - Injection site mass [Unknown]
  - Injection site extravasation [Unknown]
  - Glycosylated haemoglobin increased [Unknown]
